FAERS Safety Report 5394227-2 (Version None)
Quarter: 2007Q3

REPORT INFORMATION
  Report Type: 
  Country: None (occurrence: None)
  Receive Date: 20070723
  Receipt Date: 20070503
  Transmission Date: 20080115
  Serious: No
  Sender: FDA-Public Use
  Company Number: A0649886A

PATIENT
  Age: 76 Year
  Sex: Female

DRUGS (6)
  1. AVANDIA [Suspect]
     Dosage: 8MG PER DAY
     Route: 048
     Dates: start: 19990101
  2. METFORMIN HCL [Concomitant]
  3. GLIPIZIDE [Concomitant]
  4. VESICARE [Concomitant]
  5. LISINOPRIL [Concomitant]
  6. ARIMIDEX [Concomitant]

REACTIONS (2)
  - FATIGUE [None]
  - URINARY TRACT INFECTION [None]
